FAERS Safety Report 5150782-9 (Version None)
Quarter: 2006Q4

REPORT INFORMATION
  Report Type: 
  Country: None (occurrence: None)
  Receive Date: 20061114
  Receipt Date: 20041001
  Transmission Date: 20070319
  Serious: Yes (Other)
  Sender: FDA-Public Use
  Company Number: PHFR2004GB03717

PATIENT
  Age: 54 Year
  Sex: Female

DRUGS (8)
  1. TEGRETOL [Suspect]
     Indication: EPILEPSY
     Dosage: 400MG
     Route: 065
  2. TEGRETOL [Suspect]
  3. SINGULAIR [Concomitant]
     Route: 065
  4. BECOTIDE [Concomitant]
     Route: 065
  5. VITA-B [Concomitant]
     Route: 065
  6. FLIXONASE [Concomitant]
     Route: 065
  7. LOSEC                                   /CAN/ [Concomitant]
     Route: 065
  8. TETRACYCLINE [Concomitant]
     Route: 065

REACTIONS (14)
  - ALLERGIC BRONCHITIS [None]
  - AMBLYOPIA [None]
  - BLINDNESS [None]
  - BLOOD CHOLESTEROL ABNORMAL [None]
  - BLOOD CHOLESTEROL INCREASED [None]
  - CATARACT [None]
  - CONVULSION [None]
  - COORDINATION ABNORMAL [None]
  - EOSINOPHILIA [None]
  - HIGH DENSITY LIPOPROTEIN INCREASED [None]
  - MUSCLE SPASMS [None]
  - NERVE INJURY [None]
  - TUNNEL VISION [None]
  - VISUAL DISTURBANCE [None]
